FAERS Safety Report 16024429 (Version 1)
Quarter: 2019Q1

REPORT INFORMATION
  Report Type: Spontaneous
  Country: JP (occurrence: JP)
  Receive Date: 20190301
  Receipt Date: 20190301
  Transmission Date: 20190418
  Serious: Yes (Other)
  Sender: FDA-Public Use
  Company Number: JP-009507513-1902JPN002678J

PATIENT
  Age: 64 Year
  Sex: Female

DRUGS (4)
  1. BELSOMRA [Suspect]
     Active Substance: SUVOREXANT
     Indication: INSOMNIA
     Dosage: 1 DOSAGE FORM
     Route: 048
  2. REMERON [Concomitant]
     Active Substance: MIRTAZAPINE
     Indication: INSOMNIA
     Dosage: 0.5 DOSAGE FORM
     Route: 048
  3. DOGMATYL [Concomitant]
     Active Substance: SULPIRIDE
     Indication: INSOMNIA
     Dosage: 0.5 DOSAGE FORM
     Route: 048
  4. REMERON [Concomitant]
     Active Substance: MIRTAZAPINE
     Dosage: 1 DOSAGE FORM
     Route: 048

REACTIONS (4)
  - Depressed level of consciousness [Recovering/Resolving]
  - Depressive symptom [Unknown]
  - Initial insomnia [Recovering/Resolving]
  - Insomnia [Recovering/Resolving]
